FAERS Safety Report 9282288 (Version 4)
Quarter: 2013Q3

REPORT INFORMATION
  Report Type: Spontaneous
  Country: US (occurrence: US)
  Receive Date: 20130510
  Receipt Date: 20130802
  Transmission Date: 20140515
  Serious: Yes (Hospitalization, Other)
  Sender: FDA-Public Use
  Company Number: US-PFIZER INC-2013142094

PATIENT
  Sex: Female

DRUGS (8)
  1. EFFEXOR XR [Suspect]
     Indication: DEPRESSION
     Dosage: 150 MG, 1X/DAY
     Route: 048
     Dates: end: 20130430
  2. CLONAZEPAM [Concomitant]
     Dosage: 0.2 MG, 3X/DAY
  3. AMLODIPINE [Concomitant]
     Dosage: 5 MG, UNK (IN THE MORNING)
  4. NORTRIPTYLINE [Concomitant]
     Dosage: 25 MG, UNK (IN MORNING)
  5. PRAVASTATIN [Concomitant]
     Dosage: 40 MG, 1X/DAY (BEDTIME)
  6. HALOPERIDOL [Concomitant]
     Dosage: 1 MG, 3X/DAY
  7. TRAZODONE [Concomitant]
     Dosage: 50 MG, 1X/DAY (BEDTIME)
  8. HYDROXYZINE [Concomitant]
     Dosage: 25 MG, 3X/DAY

REACTIONS (2)
  - Suicide attempt [Unknown]
  - Suicidal ideation [Unknown]
